FAERS Safety Report 6199334-2 (Version None)
Quarter: 2009Q2

REPORT INFORMATION
  Report Type: 
  Country: None (occurrence: None)
  Receive Date: 20090520
  Receipt Date: 20090520
  Transmission Date: 20091009
  Serious: Yes (Other)
  Sender: FDA-Public Use
  Company Number: None

PATIENT
  Age: 62 Year
  Sex: Male
  Weight: 143.7903 kg

DRUGS (1)
  1. ORENCIA [Suspect]
     Indication: RHEUMATOID ARTHRITIS
     Dosage: 1,000 MG ONCE MONTHLY IV
     Route: 042
     Dates: start: 20030101, end: 20081210

REACTIONS (1)
  - NON-HODGKIN'S LYMPHOMA [None]
